FAERS Safety Report 5523601-6 (Version None)
Quarter: 2007Q4

REPORT INFORMATION
  Report Type: 
  Country: None (occurrence: None)
  Receive Date: 20071121
  Receipt Date: 20071113
  Transmission Date: 20080405
  Serious: Yes (Hospitalization)
  Sender: FDA-Public Use
  Company Number: US-JNJFOC-20071005207

PATIENT
  Sex: Female
  Weight: 82.1 kg

DRUGS (1)
  1. REMICADE [Suspect]
     Indication: COLITIS ULCERATIVE

REACTIONS (8)
  - CARDIOMYOPATHY ACUTE [None]
  - CEREBROVASCULAR ACCIDENT [None]
  - COLITIS ULCERATIVE [None]
  - INCREASED TENDENCY TO BRUISE [None]
  - LEFT VENTRICULAR HYPERTROPHY [None]
  - OBESITY [None]
  - SNORING [None]
  - VIRAL MYOCARDITIS [None]
